FAERS Safety Report 6795044-9 (Version None)
Quarter: 2010Q2

REPORT INFORMATION
  Report Type: 
  Country: None (occurrence: None)
  Receive Date: 20100625
  Receipt Date: 20100615
  Transmission Date: 20101027
  Serious: Yes (Disabling, Other)
  Sender: FDA-Public Use
  Company Number: PHHY2010IT39941

PATIENT
  Sex: Female

DRUGS (4)
  1. EXJADE [Suspect]
     Indication: HAEMOSIDEROSIS
     Dosage: 2 G DAILY
     Route: 048
     Dates: start: 20060101, end: 20100611
  2. INSULIN [Concomitant]
     Route: 058
  3. GLUCOPHAGE [Concomitant]
  4. PILOCARPINE HYDROCHLORIDE [Concomitant]

REACTIONS (2)
  - MUSCULAR WEAKNESS [None]
  - MYALGIA [None]
